FAERS Safety Report 11171052 (Version 1)
Quarter: 2015Q2

REPORT INFORMATION
  Report Type: Spontaneous
  Country: GB (occurrence: GB)
  Receive Date: 20150608
  Receipt Date: 20150608
  Transmission Date: 20150821
  Serious: Yes (Disabling)
  Sender: FDA-Public Use
  Company Number: GB-TEVA-567050ACC

PATIENT
  Age: 57 Year
  Sex: Female

DRUGS (1)
  1. ARIPIPRAZOLE. [Suspect]
     Active Substance: ARIPIPRAZOLE
     Indication: BIPOLAR DISORDER
     Dosage: 1 DOSAGE FORMS DAILY; IN THE MORNING; DAILY DOSE: 1 DOSAGE FORMS
     Route: 048
     Dates: start: 20140701, end: 20150301

REACTIONS (6)
  - Suicidal ideation [Recovered/Resolved with Sequelae]
  - Apathy [Recovered/Resolved with Sequelae]
  - Agitated depression [Recovered/Resolved with Sequelae]
  - Restless legs syndrome [Not Recovered/Not Resolved]
  - Emotional poverty [Recovered/Resolved with Sequelae]
  - Disturbance in attention [Recovered/Resolved with Sequelae]
